FAERS Safety Report 20556365 (Version 1)
Quarter: 2022Q1

REPORT INFORMATION
  Report Type: Spontaneous
  Country: GB (occurrence: GB)
  Receive Date: 20220305
  Receipt Date: 20220305
  Transmission Date: 20220424
  Serious: Yes (Congenital Anomaly, Other)
  Sender: FDA-Public Use
  Company Number: GB-ABBVIE-21K-167-4161379-00

PATIENT

DRUGS (2)
  1. VALPROATE SODIUM [Suspect]
     Active Substance: VALPROATE SODIUM
     Indication: Maternal exposure timing unspecified
     Route: 064
  2. LEVETIRACETAM [Suspect]
     Active Substance: LEVETIRACETAM
     Indication: Maternal exposure timing unspecified
     Route: 064

REACTIONS (13)
  - Foetal anticonvulsant syndrome [Unknown]
  - Lip disorder [Unknown]
  - Hypermobility syndrome [Unknown]
  - Dysplasia [Unknown]
  - Congenital foot malformation [Unknown]
  - Learning disorder [Unknown]
  - Ventricular septal defect [Unknown]
  - Dysmorphism [Unknown]
  - Talipes [Unknown]
  - Craniosynostosis [Unknown]
  - Autism spectrum disorder [Unknown]
  - Deafness [Unknown]
  - Foetal exposure during pregnancy [Unknown]
